FAERS Safety Report 18992580 (Version 1)
Quarter: 2021Q1

REPORT INFORMATION
  Report Type: Spontaneous
  Country: NL (occurrence: NL)
  Receive Date: 20210310
  Receipt Date: 20210310
  Transmission Date: 20210420
  Serious: Yes (Other)
  Sender: FDA-Public Use
  Company Number: NL-ASTRAZENECA-2021A096613

PATIENT
  Sex: Male
  Weight: 93 kg

DRUGS (7)
  1. INSULINE ASPART [Concomitant]
     Dosage: INJECTION FLUID, 100 UNITS/ML (UNITS PER MILLILITERS)
  2. ACETYLSALICYLZUUR [Concomitant]
     Active Substance: ASPIRIN
     Dosage: 80 MG (MILLIGRAM)
  3. INSULINE DETEMIR [Concomitant]
     Dosage: INJECTION FLUID, 100 UNITS/ML (UNITS PER MILLILITERS)
  4. AMLODIPINE [Concomitant]
     Active Substance: AMLODIPINE BESYLATE
     Dosage: 10 MG (MILLIGRAM)
  5. EZETIMIB [Concomitant]
     Active Substance: EZETIMIBE
     Dosage: 10 MG (MILLIGRAM)
  6. METOPROLOL. [Concomitant]
     Active Substance: METOPROLOL
     Dosage: 1DD 150 MG
  7. OMEPRAZOL [Suspect]
     Active Substance: OMEPRAZOLE
     Indication: GASTROINTESTINAL ULCER
     Route: 065
     Dates: start: 2013, end: 20160519

REACTIONS (1)
  - Renal failure [Recovering/Resolving]
